FAERS Safety Report 9962358 (Version 1)
Quarter: 2014Q1

REPORT INFORMATION
  Report Type: Report from Study
  Country: US (occurrence: US)
  Receive Date: 20140305
  Receipt Date: 20140305
  Transmission Date: 20141002
  Serious: No
  Sender: FDA-Public Use
  Company Number: US-ABBVIE-13P-163-1114193-00

PATIENT
  Age: 63 Year
  Sex: Female

DRUGS (6)
  1. HUMIRA [Suspect]
     Indication: PSORIASIS
     Dates: start: 20130625, end: 20130625
  2. HUMIRA [Suspect]
     Dates: start: 20130702
  3. ATIVAN [Concomitant]
     Indication: ANXIETY
  4. PROZAC [Concomitant]
     Indication: ANTIDEPRESSANT THERAPY
  5. VASOTEC [Concomitant]
     Indication: BLOOD PRESSURE
  6. ZYRTEC [Concomitant]
     Indication: SEASONAL ALLERGY

REACTIONS (4)
  - Device malfunction [Unknown]
  - Incorrect dose administered [Unknown]
  - Incorrect dose administered [Unknown]
  - Injection site pain [Not Recovered/Not Resolved]
